FAERS Safety Report 6759014-9 (Version None)
Quarter: 2010Q2

REPORT INFORMATION
  Report Type: 
  Country: None (occurrence: None)
  Receive Date: 20100602
  Receipt Date: 20100518
  Transmission Date: 20101027
  Serious: Yes (Disabling, Other)
  Sender: FDA-Public Use
  Company Number: APP201000508

PATIENT
  Age: 15 Year
  Sex: Male

DRUGS (2)
  1. BUPIVACAINE HYDROCHLORIDE AND EPINEPHRINE [Suspect]
     Indication: MUSCULOSKELETAL PAIN
     Dosage: MORPHINE
     Dates: start: 20050809
  2. ON-Q PAINBUSTER PAIN PUMP [Suspect]
     Indication: MUSCULOSKELETAL PAIN
     Dates: start: 20050809

REACTIONS (2)
  - JOINT INJURY [None]
  - MUSCULOSKELETAL PAIN [None]
